FAERS Safety Report 5126232-5 (Version None)
Quarter: 2006Q3

REPORT INFORMATION
  Report Type: 
  Country: None (occurrence: None)
  Receive Date: 20060824
  Receipt Date: 20060627
  Transmission Date: 20061208
  Serious: Yes (Other)
  Sender: FDA-Public Use
  Company Number: WAES 0606USA05441

PATIENT
  Age: 58 Year
  Sex: Male

DRUGS (1)
  1. VYTORIN [Suspect]
     Indication: BLOOD CHOLESTEROL
     Dosage: 10-40 MG/DAILY/PO
     Route: 048
     Dates: end: 20060626

REACTIONS (2)
  - CHOLELITHIASIS [None]
  - PANCREATITIS [None]
